FAERS Safety Report 25306827 (Version 1)
Quarter: 2025Q2

REPORT INFORMATION
  Report Type: Spontaneous
  Country: US (occurrence: US)
  Receive Date: 20250513
  Receipt Date: 20250513
  Transmission Date: 20250716
  Serious: No
  Sender: UCB
  Company Number: US-UCBSA-2025011629

PATIENT
  Sex: Female
  Weight: 75.737 kg

DRUGS (1)
  1. CIMZIA [Suspect]
     Active Substance: CERTOLIZUMAB PEGOL
     Indication: Rheumatoid arthritis
     Dosage: 400 MILLIGRAM, EV 4 WEEKS
     Route: 058
     Dates: start: 202501

REACTIONS (4)
  - Night sweats [Unknown]
  - Fatigue [Unknown]
  - Nasopharyngitis [Unknown]
  - Erythema [Unknown]

NARRATIVE: CASE EVENT DATE: 20250101
